FAERS Safety Report 8402331-7 (Version None)
Quarter: 2012Q2

REPORT INFORMATION
  Report Type: 
  Country: None (occurrence: None)
  Receive Date: 20120601
  Receipt Date: 20090507
  Transmission Date: 20120825
  Serious: Yes (Life-Threatening, Other)
  Sender: FDA-Public Use
  Company Number: JP-BRISTOL-MYERS SQUIBB COMPANY-14593644

PATIENT
  Age: 59 Year
  Sex: Female
  Weight: 39 kg

DRUGS (6)
  1. HOKUNALIN [Concomitant]
     Dosage: FORM-TAPE(INCLUDING POULTICE)
     Dates: start: 20081224, end: 20090106
  2. ABILIFY [Suspect]
     Indication: SCHIZOPHRENIA
     Dosage: STENGTH:6MG. UNK DOSE: UNK-DEC08 12MG: 22DEC08-06JAN09(16DAYS) 40MG
     Route: 048
     Dates: end: 20090106
  3. PHENOBARBITAL TAB [Suspect]
     Indication: INSOMNIA
     Dosage: FORM-TABLET. UNK DOSE:UNK-DEC08 1DF: 22DEC08-06JAN09 (16DAYS)
     Route: 048
     Dates: end: 20090106
  4. LASIX [Suspect]
     Indication: CARDIAC FAILURE
     Dosage: LASIX SCH. FORM-TAB,120MG/DAY DISCONTINUED ON 7JAN09.
     Route: 048
     Dates: start: 20090102, end: 20090107
  5. BIOLACTIS [Concomitant]
     Dosage: FORMULATION - POWDER.
     Dates: start: 20081223, end: 20090106
  6. PREDNISOLONE [Concomitant]
     Dosage: FORM = TAB.
     Dates: start: 20090107

REACTIONS (2)
  - VASCULITIS [None]
  - AGRANULOCYTOSIS [None]
